FAERS Safety Report 5092690-8 (Version None)
Quarter: 2006Q3

REPORT INFORMATION
  Report Type: 
  Country: None (occurrence: None)
  Receive Date: 20060830
  Receipt Date: 20060202
  Transmission Date: 20061208
  Serious: Yes (Hospitalization, Other)
  Sender: FDA-Public Use
  Company Number: US-BAYER-200610673BWH

PATIENT
  Age: 86 Year
  Sex: Male

DRUGS (8)
  1. SORAFENIB [Suspect]
     Indication: METASTATIC RENAL CELL CARCINOMA
     Dosage: TOTAL DAILY DOSE: 800 MG  UNIT DOSE: 200 MG
     Route: 048
     Dates: start: 20060101, end: 20060129
  2. OXYCONTIN [Concomitant]
     Indication: PAIN
     Dosage: TOTAL DAILY DOSE: 40 MG
  3. COLACE [Concomitant]
     Indication: CONSTIPATION PROPHYLAXIS
     Dosage: TOTAL DAILY DOSE: 200 MG
  4. ASPIRIN [Concomitant]
  5. PROCHLORPERAZINE TAB [Concomitant]
  6. SENNA [Concomitant]
  7. ULTRAM [Concomitant]
  8. AVELOX [Concomitant]

REACTIONS (20)
  - ABDOMINAL DISTENSION [None]
  - BLOOD ALBUMIN DECREASED [None]
  - BLOOD PRESSURE SYSTOLIC INCREASED [None]
  - CARDIAC MURMUR [None]
  - CHILLS [None]
  - DIARRHOEA [None]
  - ELECTROCARDIOGRAM ST SEGMENT DEPRESSION [None]
  - FALL [None]
  - METASTASES TO CENTRAL NERVOUS SYSTEM [None]
  - NAUSEA [None]
  - NEUTROPHIL PERCENTAGE INCREASED [None]
  - PAIN [None]
  - PERIRECTAL ABSCESS [None]
  - RESPIRATORY RATE INCREASED [None]
  - RIB FRACTURE [None]
  - SINUS TACHYCARDIA [None]
  - SUICIDAL IDEATION [None]
  - TREATMENT NONCOMPLIANCE [None]
  - URINE KETONE BODY PRESENT [None]
  - VOMITING [None]
